FAERS Safety Report 24648496 (Version 2)
Quarter: 2024Q4

REPORT INFORMATION
  Report Type: Report from Study
  Country: BG (occurrence: BG)
  Receive Date: 20241121
  Receipt Date: 20241129
  Transmission Date: 20250115
  Serious: Yes (Hospitalization, Other)
  Sender: ABBVIE
  Company Number: BG-ABBVIE-5623297

PATIENT
  Age: 47 Year
  Sex: Male
  Weight: 90 kg

DRUGS (4)
  1. HUMIRA [Suspect]
     Active Substance: ADALIMUMAB
     Indication: Colitis ulcerative
     Route: 058
     Dates: start: 202205, end: 202212
  2. HUMIRA [Suspect]
     Active Substance: ADALIMUMAB
     Dosage: 160 MG INITIAL, 80 MG FOR SIX MONTHS
     Route: 058
  3. HUMIRA [Suspect]
     Active Substance: ADALIMUMAB
     Dosage: 160 MG INITIAL, 80 MG AND 40 MG
     Route: 058
  4. HUMIRA [Suspect]
     Active Substance: ADALIMUMAB
     Dosage: 160 MG INITIAL, 80 MG AND 40 MG
     Route: 058
     Dates: start: 202212, end: 202312

REACTIONS (29)
  - Granulocytosis [Unknown]
  - Weight increased [Unknown]
  - Drug ineffective [Unknown]
  - Weight decreased [Unknown]
  - Leukocytosis [Unknown]
  - Investigation abnormal [Unknown]
  - Haematochezia [Recovered/Resolved]
  - Diarrhoea haemorrhagic [Unknown]
  - Ulcer [Recovered/Resolved]
  - Diarrhoea [Unknown]
  - Pyrexia [Unknown]
  - Drug specific antibody present [Unknown]
  - Pseudopolyp [Unknown]
  - Colitis ulcerative [Unknown]
  - Anal erythema [Unknown]
  - Pseudopolyposis [Unknown]
  - Gastrointestinal scarring [Unknown]
  - Band neutrophil count increased [Unknown]
  - Gastrointestinal scarring [Unknown]
  - Pseudopolyposis [Unknown]
  - Colitis ulcerative [Unknown]
  - Intestinal mucosal atrophy [Unknown]
  - Abdominal adhesions [Unknown]
  - Anal erosion [Unknown]
  - Gastrointestinal mucosa hyperaemia [Unknown]
  - Pseudopolyposis [Unknown]
  - Gastrointestinal scarring [Unknown]
  - Gastrointestinal oedema [Unknown]
  - Haemorrhoids [Unknown]

NARRATIVE: CASE EVENT DATE: 20221001
